FAERS Safety Report 8136594-2 (Version None)
Quarter: 2012Q1

REPORT INFORMATION
  Report Type: 
  Country: None (occurrence: None)
  Receive Date: 20120214
  Receipt Date: 20120208
  Transmission Date: 20120608
  Serious: Yes (Death, Hospitalization)
  Sender: FDA-Public Use
  Company Number: GB-AMGEN-GBRSP2012004934

PATIENT
  Age: 75 Year
  Sex: Female
  Weight: 62 kg

DRUGS (8)
  1. ALFACALCIDOL [Concomitant]
     Indication: RENAL FAILURE CHRONIC
  2. CALCIUM CARBONATE [Concomitant]
     Indication: OSTEOPOROSIS
     Dosage: UNK UNK, BID
  3. ALFACALCIDOL [Concomitant]
     Indication: OSTEOPOROSIS
     Dosage: 0.25 MUG, QD
  4. RAMIPRIL [Concomitant]
     Dosage: UNK
  5. LEVOTHYROXINE SODIUM [Concomitant]
     Indication: HYPOTHYROIDISM
     Dosage: 75 MUG, QD
  6. PREDNISONE TAB [Concomitant]
     Indication: RHEUMATOID ARTHRITIS
     Dosage: 40 MG, QD
  7. METHOTREXATE [Suspect]
     Indication: RHEUMATOID ARTHRITIS
     Dosage: 5 MG, QWK
     Route: 048
     Dates: start: 19960101, end: 20111103
  8. PROLIA [Suspect]
     Indication: OSTEOPOROSIS
     Dosage: 60 MG, Q6MO
     Route: 058
     Dates: start: 20110822

REACTIONS (3)
  - PANCYTOPENIA [None]
  - GASTROINTESTINAL HAEMORRHAGE [None]
  - RENAL FAILURE ACUTE [None]
